FAERS Safety Report 16478154 (Version 1)
Quarter: 2019Q2

REPORT INFORMATION
  Report Type: Spontaneous
  Country: GB (occurrence: GB)
  Receive Date: 20190626
  Receipt Date: 20190626
  Transmission Date: 20190711
  Serious: Yes (Hospitalization)
  Sender: FDA-Public Use
  Company Number: GB-ACCORD-135037

PATIENT
  Age: 74 Year
  Sex: Male

DRUGS (8)
  1. ATORVASTATIN [Concomitant]
     Active Substance: ATORVASTATIN
  2. BISOPROLOL [Concomitant]
     Active Substance: BISOPROLOL
  3. PERINDOPRIL [Concomitant]
     Active Substance: PERINDOPRIL
  4. DONEPEZIL/DONEPEZIL HYDROCHLORIDE [Suspect]
     Active Substance: DONEPEZIL HYDROCHLORIDE
     Indication: DEMENTIA ALZHEIMER^S TYPE
     Dosage: AT BEDTIME, ALSO RECEIVED 5 MG,  INCREASED FROM 5MG. DECREASED BACK TO 5MG ON 06-MAY-2019
     Route: 048
     Dates: end: 20190506
  5. NICORANDIL [Concomitant]
     Active Substance: NICORANDIL
  6. OMEPRAZOLE. [Suspect]
     Active Substance: OMEPRAZOLE
     Indication: PRODUCT USED FOR UNKNOWN INDICATION
     Route: 048
     Dates: end: 20190507
  7. PLANTAGO OVATA [Concomitant]
     Active Substance: HERBALS\PLANTAGO OVATA LEAF
  8. ACETYLSALICYLIC ACID [Concomitant]
     Active Substance: ASPIRIN

REACTIONS (4)
  - Confusional state [Unknown]
  - Muscle contractions involuntary [Unknown]
  - Inappropriate antidiuretic hormone secretion [Unknown]
  - Hyponatraemia [Unknown]
